FAERS Safety Report 5669937-X (Version None)
Quarter: 2008Q1

REPORT INFORMATION
  Report Type: 
  Country: None (occurrence: None)
  Receive Date: 20080317
  Receipt Date: 20080306
  Transmission Date: 20080703
  Serious: Yes (Other)
  Sender: FDA-Public Use
  Company Number: US-GILEAD-2008-0015474

PATIENT
  Sex: Female
  Weight: 48.124 kg

DRUGS (8)
  1. LETAIRIS [Suspect]
     Indication: PULMONARY HYPERTENSION
     Route: 048
     Dates: start: 20080115
  2. COUMADIN [Concomitant]
     Route: 048
     Dates: end: 20080225
  3. LEVOTHYROXINE SODIUM [Concomitant]
     Indication: HYPOTHYROIDISM
     Route: 048
  4. TOPROL [Concomitant]
     Indication: CARDIOMYOPATHY
     Route: 048
  5. INSULIN [Concomitant]
     Indication: DIABETES MELLITUS
  6. COZAAR [Concomitant]
     Indication: CARDIOMYOPATHY
     Route: 048
  7. COREG [Concomitant]
     Indication: CARDIOMYOPATHY
     Route: 048
  8. NORVASC [Concomitant]
     Indication: PULMONARY HYPERTENSION
     Route: 048

REACTIONS (1)
  - BLINDNESS UNILATERAL [None]
